FAERS Safety Report 24970448 (Version 1)
Quarter: 2025Q1

REPORT INFORMATION
  Report Type: Spontaneous
  Country: US (occurrence: US)
  Receive Date: 20250214
  Receipt Date: 20250214
  Transmission Date: 20250409
  Serious: Yes (Other)
  Sender: JOHNSON AND JOHNSON
  Company Number: US-JNJFOC-20250198925

PATIENT
  Sex: Male

DRUGS (1)
  1. TECVAYLI [Suspect]
     Active Substance: TECLISTAMAB-CQYV
     Indication: Plasma cell myeloma
     Dates: start: 202210

REACTIONS (5)
  - Drug ineffective [Unknown]
  - Influenza like illness [Unknown]
  - Swelling [Unknown]
  - Injection site pruritus [Unknown]
  - Pyrexia [Unknown]
